FAERS Safety Report 5740175-5 (Version None)
Quarter: 2008Q2

REPORT INFORMATION
  Report Type: 
  Country: None (occurrence: None)
  Receive Date: 20080516
  Receipt Date: 20080509
  Transmission Date: 20081010
  Serious: Yes (Hospitalization)
  Sender: FDA-Public Use
  Company Number: FR-ABBOTT-07P-056-0365033-00

PATIENT
  Age: 68 Year
  Sex: Female

DRUGS (3)
  1. DEPAKOTE [Suspect]
     Indication: BIPOLAR I DISORDER
     Route: 048
     Dates: start: 20060406
  2. LITHIUM CARBONATE [Suspect]
     Indication: BIPOLAR I DISORDER
     Route: 048
     Dates: end: 20060410
  3. LITHIUM CARBONATE [Suspect]
     Dates: start: 20060406

REACTIONS (16)
  - ANTIPSYCHOTIC DRUG LEVEL INCREASED [None]
  - BRADYPHRENIA [None]
  - COMMUNICATION DISORDER [None]
  - DISORIENTATION [None]
  - ELECTROENCEPHALOGRAM ABNORMAL [None]
  - ENCEPHALOPATHY [None]
  - FALL [None]
  - FATIGUE [None]
  - HYPERAMMONAEMIA [None]
  - HYPERNATRAEMIA [None]
  - ILL-DEFINED DISORDER [None]
  - LOSS OF CONSCIOUSNESS [None]
  - MALAISE [None]
  - METABOLIC ENCEPHALOPATHY [None]
  - SCAN BRAIN [None]
  - STATUS EPILEPTICUS [None]
